FAERS Safety Report 22064297 (Version 2)
Quarter: 2024Q3

REPORT INFORMATION
  Report Type: Other
  Country: CA (occurrence: CA)
  Receive Date: 20230306
  Receipt Date: 20240920
  Transmission Date: 20241016
  Serious: Yes (Other)
  Sender: APOTEX
  Company Number: CA-APOTEX-2023AP004383

PATIENT
  Sex: Male

DRUGS (2)
  1. MYCOPHENOLATE MOFETIL [Suspect]
     Active Substance: MYCOPHENOLATE MOFETIL
     Indication: Neuromyelitis optica spectrum disorder
     Dosage: 1000 MILLIGRAM, BID
     Route: 048
  2. SATRALIZUMAB [Suspect]
     Active Substance: SATRALIZUMAB
     Indication: Neuromyelitis optica spectrum disorder
     Dosage: 120 MILLIGRAM (FREQUENCY WAS 1 EVERY 4 WEEKS)
     Route: 058

REACTIONS (2)
  - Neuromyelitis optica spectrum disorder [Recovered/Resolved]
  - Ill-defined disorder [Recovered/Resolved]
